FAERS Safety Report 21962993 (Version 4)
Quarter: 2023Q2

REPORT INFORMATION
  Report Type: Spontaneous
  Country: US (occurrence: US)
  Receive Date: 20230207
  Receipt Date: 20230523
  Transmission Date: 20230721
  Serious: No
  Sender: FDA-Public Use
  Company Number: US-BRISTOL-MYERS SQUIBB COMPANY-2023-017851

PATIENT
  Age: 65 Year
  Sex: Female

DRUGS (1)
  1. LENALIDOMIDE [Suspect]
     Active Substance: LENALIDOMIDE
     Indication: Plasma cell myeloma
     Dosage: EVERY DAY FOR 14 DAYS ON, THEN 7 DAYS OFF EVERY 21 DAY?FREQUENCY-TAKE 1 CAPSULE BY ?MOUTH ONCE ?DAIL
     Route: 048

REACTIONS (8)
  - Tremor [Not Recovered/Not Resolved]
  - Dysphonia [Not Recovered/Not Resolved]
  - Off label use [Unknown]
  - Tongue blistering [Recovered/Resolved with Sequelae]
  - Blister [Recovered/Resolved]
  - Nervousness [Recovered/Resolved with Sequelae]
  - Muscle spasms [Recovered/Resolved with Sequelae]
  - Pyrexia [Recovered/Resolved with Sequelae]
